FAERS Safety Report 19019382 (Version 1)
Quarter: 2021Q1

REPORT INFORMATION
  Report Type: Spontaneous
  Country: US (occurrence: US)
  Receive Date: 20210317
  Receipt Date: 20210317
  Transmission Date: 20210420
  Serious: No
  Sender: FDA-Public Use
  Company Number: US-SA-2021SA001611

PATIENT
  Sex: Male

DRUGS (2)
  1. VERZENIO [Concomitant]
     Active Substance: ABEMACICLIB
  2. DUPIXENT [Suspect]
     Active Substance: DUPILUMAB
     Indication: NASAL POLYPS
     Dosage: 300 MG (FREQUENCY? OTHER)
     Route: 058
     Dates: start: 20200917

REACTIONS (1)
  - Product dose omission issue [Unknown]
